FAERS Safety Report 5716284-3 (Version None)
Quarter: 2008Q2

REPORT INFORMATION
  Report Type: 
  Country: None (occurrence: None)
  Receive Date: 20080416
  Receipt Date: 20070420
  Transmission Date: 20081010
  Serious: Yes (Hospitalization)
  Sender: FDA-Public Use
  Company Number: 2007-BP-05610BP

PATIENT
  Age: 75 Year
  Sex: Male

DRUGS (2)
  1. FLOMAX [Suspect]
     Indication: BENIGN PROSTATIC HYPERPLASIA
     Dosage: 0.4 MG (0.4 MG,1 IN 1 D),PO
     Route: 048
     Dates: start: 19970101, end: 20060401
  2. AVODART [Concomitant]

REACTIONS (2)
  - DIZZINESS [None]
  - VOMITING [None]
